FAERS Safety Report 24525891 (Version 1)
Quarter: 2024Q4

REPORT INFORMATION
  Report Type: Report from Study
  Country: US (occurrence: US)
  Receive Date: 20241020
  Receipt Date: 20241020
  Transmission Date: 20250114
  Serious: Yes (Other)
  Sender: ABBVIE
  Company Number: US-ABBVIE-5959815

PATIENT
  Sex: Female

DRUGS (1)
  1. RINVOQ [Suspect]
     Active Substance: UPADACITINIB
     Indication: Dermatitis atopic
     Route: 048
     Dates: start: 20240607

REACTIONS (3)
  - Rotator cuff syndrome [Unknown]
  - Dermatitis atopic [Unknown]
  - Thermal burn [Unknown]

NARRATIVE: CASE EVENT DATE: 20240101
